FAERS Safety Report 14587098 (Version 2)
Quarter: 2018Q1

REPORT INFORMATION
  Report Type: Spontaneous
  Country: NL (occurrence: NL)
  Receive Date: 20180301
  Receipt Date: 20180323
  Transmission Date: 20180509
  Serious: Yes (Other)
  Sender: FDA-Public Use
  Company Number: NL-JNJFOC-20180225308

PATIENT
  Age: 56 Year
  Sex: Male
  Weight: 60.78 kg

DRUGS (2)
  1. STELARA [Suspect]
     Active Substance: USTEKINUMAB
     Indication: PSORIATIC ARTHROPATHY
     Route: 058
     Dates: start: 20120320, end: 20180225
  2. STELARA [Suspect]
     Active Substance: USTEKINUMAB
     Indication: PSORIASIS
     Route: 058
     Dates: start: 20120320, end: 20180225

REACTIONS (1)
  - Colorectal adenocarcinoma [Recovering/Resolving]

NARRATIVE: CASE EVENT DATE: 201712
